FAERS Safety Report 23623584 (Version 6)
Quarter: 2024Q2

REPORT INFORMATION
  Report Type: Spontaneous
  Country: CA (occurrence: CA)
  Receive Date: 20240312
  Receipt Date: 20240409
  Transmission Date: 20240716
  Serious: Yes (Other)
  Sender: FDA-Public Use
  Company Number: CA-PFIZER INC-202400049499

PATIENT
  Age: 24 Year
  Sex: Female
  Weight: 55 kg

DRUGS (8)
  1. RUXIENCE [Suspect]
     Active Substance: RITUXIMAB-PVVR
     Indication: Glomerulonephritis membranous
     Dosage: 1000 MG DAY 1 AND DAY 15
     Route: 042
     Dates: start: 20240306
  2. RUXIENCE [Suspect]
     Active Substance: RITUXIMAB-PVVR
     Dosage: 1000 MG, AFTER 2 WEEKS AND 1 DAY
     Route: 042
     Dates: start: 20240321
  3. ACETAMINOPHEN [Concomitant]
     Active Substance: ACETAMINOPHEN
     Dosage: 650 MG
     Dates: start: 20240306
  4. DIPHENHYDRAMINE [Concomitant]
     Active Substance: DIPHENHYDRAMINE
     Dosage: 50 MG
     Dates: start: 20240306
  5. METHYLPREDNISOLONE [Concomitant]
     Active Substance: METHYLPREDNISOLONE
     Dosage: 100 MG
     Dates: start: 20240306
  6. TACROLIMUS [Concomitant]
     Active Substance: TACROLIMUS
     Indication: Glomerulonephritis membranous
     Dosage: 3 MG, DAILY
     Dates: start: 20240124
  7. RAMIPRIL [Concomitant]
     Active Substance: RAMIPRIL
     Indication: Glomerulonephritis membranous
     Dosage: 1.25 MG, DAILY
     Route: 048
     Dates: start: 20240124
  8. CRESTOR [Concomitant]
     Active Substance: ROSUVASTATIN CALCIUM
     Dosage: 2.5 MG, DAILY
     Dates: start: 20240124

REACTIONS (9)
  - Abdominal pain upper [Recovered/Resolved]
  - Oropharyngeal pain [Recovered/Resolved]
  - Pharyngeal swelling [Recovered/Resolved]
  - Throat tightness [Recovered/Resolved]
  - Paraesthesia [Recovered/Resolved]
  - Dizziness [Recovered/Resolved]
  - Upper respiratory tract infection [Recovering/Resolving]
  - Influenza [Recovered/Resolved]
  - Off label use [Unknown]

NARRATIVE: CASE EVENT DATE: 20240101
